FAERS Safety Report 12523080 (Version 4)
Quarter: 2016Q4

REPORT INFORMATION
  Report Type: Spontaneous
  Country: BR (occurrence: BR)
  Receive Date: 20160701
  Receipt Date: 20161215
  Transmission Date: 20170207
  Serious: Yes (Hospitalization)
  Sender: FDA-Public Use
  Company Number: PHHY2016BR090932

PATIENT
  Sex: Male
  Weight: 85 kg

DRUGS (1)
  1. EXELON PATCH [Suspect]
     Active Substance: RIVASTIGMINE
     Indication: DEMENTIA ALZHEIMER^S TYPE
     Dosage: 9.5 MG, QD (18MG/10CM2)
     Route: 062

REACTIONS (2)
  - Pneumonia [Recovering/Resolving]
  - Angina pectoris [Recovering/Resolving]
